FAERS Safety Report 24908803 (Version 8)
Quarter: 2025Q3

REPORT INFORMATION
  Report Type: Spontaneous
  Country: US (occurrence: US)
  Receive Date: 20250131
  Receipt Date: 20250711
  Transmission Date: 20251020
  Serious: No
  Sender: KARYOPHARM THERAPEUTICS
  Company Number: US-KARYOPHARM-2025KPT000104

PATIENT

DRUGS (22)
  1. XPOVIO [Suspect]
     Active Substance: SELINEXOR
     Indication: Plasma cell myeloma
     Route: 048
     Dates: start: 20250126
  2. XPOVIO [Suspect]
     Active Substance: SELINEXOR
     Route: 048
     Dates: start: 2025
  3. ACYCLOVIR [Concomitant]
     Active Substance: ACYCLOVIR
  4. ASPIRIN [Concomitant]
     Active Substance: ASPIRIN
  5. CARVEDILOL [Concomitant]
     Active Substance: CARVEDILOL
  6. DEXAMETHASONE [Concomitant]
     Active Substance: DEXAMETHASONE
  7. GABAPENTIN [Concomitant]
     Active Substance: GABAPENTIN
  8. LEVOTHYROXINE [Concomitant]
     Active Substance: LEVOTHYROXINE
  9. METHADONE [Concomitant]
     Active Substance: METHADONE HYDROCHLORIDE
  10. NITROGLYCERIN [Concomitant]
     Active Substance: NITROGLYCERIN
  11. ONDANSETRON [Concomitant]
     Active Substance: ONDANSETRON
  12. OXYCODONE [Concomitant]
     Active Substance: OXYCODONE
  13. PANTOPRAZOLE [Concomitant]
     Active Substance: PANTOPRAZOLE
  14. ROSUVASTATIN [Concomitant]
     Active Substance: ROSUVASTATIN
  15. SERTRALINE [Concomitant]
     Active Substance: SERTRALINE HYDROCHLORIDE
  16. BYOOVIZ [RANIBIZUMAB] [Concomitant]
  17. OXYCODONE AND ACETAMINOPHEN [Concomitant]
     Active Substance: ACETAMINOPHEN\OXYCODONE HYDROCHLORIDE
  18. ZOFRAN [Concomitant]
     Active Substance: ONDANSETRON HYDROCHLORIDE
  19. ACETAMINOPHEN\OXYCODONE HYDROCHLORIDE\OXYCODONE TEREPHTHALATE [Concomitant]
     Active Substance: ACETAMINOPHEN\OXYCODONE HYDROCHLORIDE\OXYCODONE TEREPHTHALATE
  20. ESOMEPRAZOLE [Concomitant]
     Active Substance: ESOMEPRAZOLE
  21. ALPRAZOLAM [Concomitant]
     Active Substance: ALPRAZOLAM
  22. NALOXONE [Concomitant]
     Active Substance: NALOXONE

REACTIONS (6)
  - Tongue discomfort [Unknown]
  - Aphasia [Unknown]
  - Restlessness [Unknown]
  - Alopecia [Unknown]
  - Fatigue [Not Recovered/Not Resolved]
  - Asthenia [Unknown]

NARRATIVE: CASE EVENT DATE: 20250101
